FAERS Safety Report 9169319 (Version 3)
Quarter: 2014Q1

REPORT INFORMATION
  Report Type: Spontaneous
  Country: US (occurrence: US)
  Receive Date: 20130318
  Receipt Date: 20140211
  Transmission Date: 20141002
  Serious: No
  Sender: FDA-Public Use
  Company Number: US-009507513-1303USA007569

PATIENT
  Sex: Male
  Weight: 85.71 kg

DRUGS (2)
  1. PROPECIA [Suspect]
     Indication: ANDROGENETIC ALOPECIA
     Dosage: 1 MG, QD
     Route: 048
     Dates: start: 20070123, end: 20071015
  2. ROGAINE [Concomitant]
     Dosage: UNK
     Dates: start: 200701

REACTIONS (10)
  - Cognitive disorder [Not Recovered/Not Resolved]
  - Hypogonadism [Unknown]
  - Asthenia [Unknown]
  - Eczema [Unknown]
  - Stress at work [Unknown]
  - Sexual dysfunction [Not Recovered/Not Resolved]
  - Gynaecomastia [Unknown]
  - Loss of libido [Unknown]
  - Erectile dysfunction [Unknown]
  - Drug ineffective [Unknown]
